FAERS Safety Report 8358114-X (Version None)
Quarter: 2012Q2

REPORT INFORMATION
  Report Type: 
  Country: None (occurrence: None)
  Receive Date: 20120514
  Receipt Date: 20120511
  Transmission Date: 20120825
  Serious: Yes (Other)
  Sender: FDA-Public Use
  Company Number: US-GLAXOSMITHKLINE-A0837237A

PATIENT
  Age: 40 Year
  Sex: Female

DRUGS (3)
  1. NEBULIZER [Concomitant]
  2. ADVAIR DISKUS 100/50 [Suspect]
     Indication: PRODUCT USED FOR UNKNOWN INDICATION
     Route: 055
     Dates: start: 20091222
  3. VENTOLIN [Suspect]
     Indication: ASTHMA
     Dosage: 2PUFF THREE TIMES PER DAY
     Route: 055
     Dates: start: 20050101

REACTIONS (7)
  - ADVERSE DRUG REACTION [None]
  - BACTERIAL INFECTION [None]
  - BLINDNESS [None]
  - ORAL DISORDER [None]
  - NASAL CONGESTION [None]
  - PRODUCT QUALITY ISSUE [None]
  - MEMORY IMPAIRMENT [None]
